FAERS Safety Report 6213827-0 (Version None)
Quarter: 2009Q2

REPORT INFORMATION
  Report Type: 
  Country: None (occurrence: None)
  Receive Date: 20090604
  Receipt Date: 20090522
  Transmission Date: 20091009
  Serious: Yes (Hospitalization)
  Sender: FDA-Public Use
  Company Number: US-RANBAXY-2009RR-24258

PATIENT
  Age: 87 Year
  Sex: Male

DRUGS (13)
  1. FLECAINIDE ACETATE [Suspect]
     Dosage: 50 MG, BID
     Dates: start: 20060401
  2. FLECAINIDE ACETATE [Suspect]
     Dosage: 100 MG, BID
     Dates: start: 20060701
  3. FLECAINIDE ACETATE [Suspect]
     Dosage: 150 MG, BID
     Dates: start: 20071001
  4. FLECAINIDE ACETATE [Suspect]
     Dosage: 125 MG, BID
  5. FLECAINIDE ACETATE [Suspect]
     Dosage: 25 MG, BID
     Dates: start: 20080201
  6. WARFARIN SODIUM [Concomitant]
     Dosage: 2 MG, UNK
  7. METOPROLOL SUCCINATE [Concomitant]
     Dosage: 150 MG, UNK
  8. METOPROLOL SUCCINATE [Concomitant]
     Dosage: 100 MG, UNK
  9. HYDROCHLOROTHIAZIDE [Concomitant]
  10. DIGOXIN [Concomitant]
     Dosage: 0.25-0.125 MG
  11. OLMESARTAN MEDOXOMIL AND HYDROCHLOROTHIZIDE [Concomitant]
     Dosage: 40/12.5 MG/DAY
  12. POTASSIUM CHLORIDE [Concomitant]
     Dosage: 10 MEQ, UNK
  13. TORSEMIDE [Concomitant]
     Dosage: 10 MG, UNK

REACTIONS (6)
  - ASTHENIA [None]
  - CARDIAC FAILURE [None]
  - GAIT DISTURBANCE [None]
  - LISTLESS [None]
  - POLLAKIURIA [None]
  - VISION BLURRED [None]
